FAERS Safety Report 14379289 (Version 1)
Quarter: 2018Q1

REPORT INFORMATION
  Report Type: Report from Study
  Country: None (occurrence: US)
  Receive Date: 20180112
  Receipt Date: 20180112
  Transmission Date: 20180509
  Serious: Yes (Life-Threatening, Other)
  Sender: FDA-Public Use
  Company Number: US-ABBVIE-16K-163-1690819-00

PATIENT
  Age: 79 Year
  Sex: Female

DRUGS (1)
  1. HUMIRA [Suspect]
     Active Substance: ADALIMUMAB
     Indication: CROHN^S DISEASE
     Route: 058
     Dates: start: 2013

REACTIONS (11)
  - Asthenia [Not Recovered/Not Resolved]
  - Sepsis [Recovered/Resolved with Sequelae]
  - Fatigue [Not Recovered/Not Resolved]
  - Renal failure [Unknown]
  - Abdominal pain [Not Recovered/Not Resolved]
  - Gastrointestinal fistula [Recovered/Resolved with Sequelae]
  - Increased viscosity of bronchial secretion [Not Recovered/Not Resolved]
  - Myocardial infarction [Unknown]
  - Multiple organ dysfunction syndrome [Unknown]
  - Productive cough [Not Recovered/Not Resolved]
  - Cystitis [Recovered/Resolved with Sequelae]

NARRATIVE: CASE EVENT DATE: 201510
